FAERS Safety Report 21614180 (Version 1)
Quarter: 2022Q4

REPORT INFORMATION
  Report Type: Spontaneous
  Country: US (occurrence: None)
  Receive Date: 20221117
  Receipt Date: 20221117
  Transmission Date: 20230113
  Serious: No
  Sender: FDA-Public Use
  Company Number: None

PATIENT
  Age: 37 Year
  Weight: 69.75 kg

DRUGS (1)
  1. PARODONTAX ACTIVE GUM HEALTH CLEAR MINT [Suspect]
     Active Substance: CETYLPYRIDINIUM CHLORIDE
     Dosage: OTHER ROUTE : MOUTHWASH;?
     Route: 050
     Dates: start: 20221114, end: 20221116

REACTIONS (1)
  - Lymphadenopathy [None]

NARRATIVE: CASE EVENT DATE: 20221117
